FAERS Safety Report 6454777-4 (Version None)
Quarter: 2009Q4

REPORT INFORMATION
  Report Type: 
  Country: None (occurrence: None)
  Receive Date: 20091118
  Receipt Date: 20091016
  Transmission Date: 20100525
  Serious: Yes (Hospitalization)
  Sender: FDA-Public Use
  Company Number: 2009SP031043

PATIENT
  Age: 30 Year
  Sex: Female

DRUGS (1)
  1. PUREGON (FOLLITROPIN BETA) (FOLLITROPIN BETA) [Suspect]
     Dates: start: 20070501

REACTIONS (2)
  - BIPOLAR DISORDER [None]
  - DISEASE RECURRENCE [None]
